FAERS Safety Report 11867379 (Version 6)
Quarter: 2016Q3

REPORT INFORMATION
  Report Type: Report from Study
  Country: DE (occurrence: DE)
  Receive Date: 20151224
  Receipt Date: 20160722
  Transmission Date: 20161109
  Serious: Yes (Death, Life-Threatening)
  Sender: FDA-Public Use
  Company Number: DE-INCYTE CORPORATION-2015IN006684

PATIENT
  Sex: Male
  Weight: 81 kg

DRUGS (2)
  1. INCB018424 [Suspect]
     Active Substance: RUXOLITINIB
     Indication: PRIMARY MYELOFIBROSIS
     Dosage: UNK
     Route: 048
     Dates: start: 20151120
  2. INCB018424 [Suspect]
     Active Substance: RUXOLITINIB
     Dosage: 2 DF, QD (2 DF, 5 MG)
     Route: 048
     Dates: start: 20151204, end: 20151207

REACTIONS (8)
  - Tracheobronchitis [Fatal]
  - Thrombocytopenia [Unknown]
  - Acute pulmonary oedema [Fatal]
  - Pneumonia [Fatal]
  - Cardiogenic shock [Fatal]
  - Acute kidney injury [Fatal]
  - Blood glucose increased [Not Recovered/Not Resolved]
  - Brain injury [Fatal]

NARRATIVE: CASE EVENT DATE: 20151204
